FAERS Safety Report 4377445-1 (Version None)
Quarter: 2004Q2

REPORT INFORMATION
  Report Type: 
  Country: None (occurrence: None)
  Receive Date: 20040615
  Receipt Date: 20040415
  Transmission Date: 20050107
  Serious: Yes (Death, Other)
  Sender: FDA-Public Use
  Company Number: JP-BRISTOL-MYERS SQUIBB COMPANY-12562237

PATIENT
  Age: 65 Year
  Sex: Male

DRUGS (12)
  1. TAXOL [Suspect]
     Indication: NON-SMALL CELL LUNG CANCER
     Route: 042
     Dates: start: 20040318, end: 20040318
  2. CODEINE [Concomitant]
     Route: 048
     Dates: start: 20030218
  3. MAGNESIUM OXIDE [Concomitant]
     Route: 048
     Dates: start: 20030218
  4. PREDONINE [Concomitant]
     Route: 048
     Dates: start: 20030317, end: 20030325
  5. UNIPHYL [Concomitant]
     Route: 048
     Dates: start: 20030131
  6. SINGULAIR [Concomitant]
     Route: 048
     Dates: start: 20030131
  7. GASTER [Concomitant]
     Dosage: 20 MG 18 MAR 2004 IV
     Route: 048
     Dates: start: 20030204
  8. ALESION [Concomitant]
     Route: 048
     Dates: start: 20030131
  9. KYTRIL [Concomitant]
     Route: 042
     Dates: start: 20030318
  10. DECADRON [Concomitant]
     Indication: PREMEDICATION
     Route: 042
     Dates: start: 20030317, end: 20030318
  11. RESTAMIN [Concomitant]
     Indication: PREMEDICATION
     Route: 048
     Dates: start: 20030318
  12. GASTER [Concomitant]
     Route: 042
     Dates: start: 20040318

REACTIONS (2)
  - INTERSTITIAL LUNG DISEASE [None]
  - NON-SMALL CELL LUNG CANCER [None]
